FAERS Safety Report 5231251-4 (Version None)
Quarter: 2007Q1

REPORT INFORMATION
  Report Type: 
  Country: None (occurrence: None)
  Receive Date: 20070206
  Receipt Date: 20070126
  Transmission Date: 20070707
  Serious: Yes (Other)
  Sender: FDA-Public Use
  Company Number: US-JNJFOC-20070107452

PATIENT
  Age: 41 Year
  Sex: Female

DRUGS (6)
  1. TOPAMAX [Suspect]
     Route: 048
  2. TOPAMAX [Suspect]
     Indication: MIGRAINE PROPHYLAXIS
     Route: 048
  3. ROZEREM [Concomitant]
     Indication: SLEEP DISORDER THERAPY
     Route: 048
  4. WELLBUTRIN [Concomitant]
     Indication: DEPRESSION
     Route: 048
  5. LOTREL [Concomitant]
     Indication: HYPERTENSION
     Route: 048
  6. FIORICET [Concomitant]
     Indication: HEADACHE
     Dosage: NOT PRESCRIBED, TAKING FRIEND'S MEDICATION
     Route: 048

REACTIONS (4)
  - ALOPECIA [None]
  - CHEST PAIN [None]
  - MIGRAINE [None]
  - PALPITATIONS [None]
